FAERS Safety Report 8803670 (Version 1)
Quarter: 2012Q4

REPORT INFORMATION
  Report Type: 
  Country: US (occurrence: US)
  Receive Date: 20120924
  Receipt Date: 20120924
  Transmission Date: 20130627
  Serious: Yes (Life-Threatening)
  Sender: FDA-Public Use
  Company Number: US-JNJFOC-20120805635

PATIENT
  Age: 18 None
  Sex: Female
  Weight: 70 kg

DRUGS (8)
  1. REMICADE [Suspect]
     Indication: CROHN^S DISEASE
     Route: 042
     Dates: start: 20120802, end: 20120802
  2. REMICADE [Suspect]
     Indication: CROHN^S DISEASE
     Route: 042
     Dates: start: 20120626
  3. REMICADE [Suspect]
     Indication: CROHN^S DISEASE
     Route: 042
     Dates: start: 2012
  4. REMICADE [Suspect]
     Indication: CROHN^S DISEASE
     Route: 042
     Dates: start: 20120118, end: 2012
  5. LIALDA [Concomitant]
     Indication: CROHN^S DISEASE
     Route: 065
  6. STEROIDS NOS [Concomitant]
     Indication: PREMEDICATION
     Route: 065
  7. URSODIOL [Concomitant]
     Indication: LIVER DISORDER
     Route: 065
  8. IRON [Concomitant]
     Indication: ANAEMIA
     Route: 065

REACTIONS (4)
  - Pericarditis [Unknown]
  - Infusion related reaction [Recovered/Resolved]
  - Infusion related reaction [Recovered/Resolved]
  - Drug ineffective [Unknown]
